FAERS Safety Report 8124145-8 (Version None)
Quarter: 2012Q1

REPORT INFORMATION
  Report Type: 
  Country: None (occurrence: None)
  Receive Date: 20120209
  Receipt Date: 20120201
  Transmission Date: 20120608
  Serious: Yes (Other)
  Sender: FDA-Public Use
  Company Number: US-BAYER-201037249NA

PATIENT
  Age: 26 Year
  Sex: Female
  Weight: 90 kg

DRUGS (8)
  1. YAZ [Suspect]
     Indication: CONTRACEPTION
     Dosage: UNK
     Route: 048
     Dates: start: 20090501, end: 20100201
  2. YAZ [Suspect]
     Indication: MENSTRUAL CYCLE MANAGEMENT
  3. ASPIRIN [Concomitant]
     Indication: ACNE
     Dosage: AS DIRECTED
     Route: 061
     Dates: start: 20091012, end: 20091112
  4. RANITIDINE [Concomitant]
     Indication: DYSPEPSIA
     Dosage: 150 MG, BID AS NEEDED
     Route: 048
     Dates: start: 20091010, end: 20091110
  5. HYDROCODONE BITARTRATE AND ACETAMINOPHEN [Concomitant]
     Dosage: 7.5 MG / 500 MG
     Route: 048
     Dates: start: 20090811
  6. MELOXICAM [Concomitant]
     Indication: PAIN
     Dosage: 15 MG, TIDA FTER MEALS
     Route: 048
     Dates: start: 20091010, end: 20091110
  7. ANTI-ACNE PREPARATIONS FOR TOPICAL USE [Concomitant]
     Indication: ACNE
     Dosage: 4/1
     Dates: start: 20091012
  8. BENZOYL PEROXIDE [Concomitant]
     Indication: ACNE
     Dosage: AS DIRECTED
     Route: 061
     Dates: start: 20091012, end: 20091112

REACTIONS (10)
  - ABDOMINAL DISTENSION [None]
  - DYSPEPSIA [None]
  - SCAR [None]
  - DIARRHOEA [None]
  - DEPRESSION [None]
  - ANXIETY [None]
  - CHOLECYSTITIS CHRONIC [None]
  - CHOLELITHIASIS [None]
  - FLATULENCE [None]
  - CONSTIPATION [None]
